FAERS Safety Report 5016960-4 (Version None)
Quarter: 2006Q2

REPORT INFORMATION
  Report Type: 
  Country: None (occurrence: None)
  Receive Date: 20060526
  Receipt Date: 20060509
  Transmission Date: 20061013
  Serious: Yes (Death)
  Sender: FDA-Public Use
  Company Number: US200605002140

PATIENT
  Age: 20 Year
  Sex: Female

DRUGS (6)
  1. ZYPREXA [Suspect]
     Indication: MENTAL RETARDATION SEVERITY UNSPECIFIED
     Dosage: 40 MG, ORAL; 20 MG, DAILY (1/D), ORAL
     Route: 048
     Dates: end: 20030801
  2. ZYPREXA [Suspect]
     Indication: MENTAL RETARDATION SEVERITY UNSPECIFIED
     Dosage: 40 MG, ORAL; 20 MG, DAILY (1/D), ORAL
     Route: 048
     Dates: start: 20030801
  3. LITHIUM (LITHIUM) [Concomitant]
  4. TEGRETOL [Concomitant]
  5. TOPIMAX (TOPIRAMATE) [Concomitant]
  6. VALPROIC ACID [Concomitant]

REACTIONS (2)
  - DRUG TOXICITY [None]
  - PRESCRIBED OVERDOSE [None]
